FAERS Safety Report 6739522-7 (Version None)
Quarter: 2010Q2

REPORT INFORMATION
  Report Type: 
  Country: None (occurrence: None)
  Receive Date: 20100525
  Receipt Date: 20100513
  Transmission Date: 20101027
  Serious: No
  Sender: FDA-Public Use
  Company Number: US-B.I. PHARMACEUTICALS,INC./RIDGEFIELD-2010-BP-05608BP

PATIENT
  Sex: Male

DRUGS (4)
  1. AGGRENOX [Suspect]
     Indication: CEREBROVASCULAR ACCIDENT PROPHYLAXIS
     Route: 048
     Dates: start: 20100101, end: 20100401
  2. AGGRENOX [Suspect]
     Route: 048
     Dates: start: 20100301
  3. AGGRENOX [Suspect]
     Route: 048
     Dates: start: 20100401
  4. UNKNOWN LOSE DOSE BETABLOCKER [Concomitant]
     Indication: HYPERTENSION
     Dates: start: 20000101

REACTIONS (5)
  - FEELING ABNORMAL [None]
  - HEADACHE [None]
  - MIGRAINE [None]
  - NAUSEA [None]
  - VOMITING [None]
